FAERS Safety Report 19509408 (Version 2)
Quarter: 2021Q3

REPORT INFORMATION
  Report Type: Report from Study
  Country: DE (occurrence: DE)
  Receive Date: 20210708
  Receipt Date: 20210721
  Transmission Date: 20211014
  Serious: Yes (Hospitalization, Disabling)
  Sender: FDA-Public Use
  Company Number: DE-JNJFOC-20210702887

PATIENT
  Age: 49 Year
  Sex: Female
  Weight: 69.7 kg

DRUGS (17)
  1. LAZERTINIB. [Suspect]
     Active Substance: LAZERTINIB
     Indication: NON-SMALL CELL LUNG CANCER
     Route: 048
     Dates: start: 20210623, end: 20210629
  2. AMIVANTAMAB. [Suspect]
     Active Substance: AMIVANTAMAB
     Indication: NON-SMALL CELL LUNG CANCER
     Route: 042
     Dates: start: 20210623, end: 20210624
  3. ENOXAPARIN [Concomitant]
     Active Substance: ENOXAPARIN
     Indication: PULMONARY EMBOLISM
     Dosage: DOSE ALSO REPORTED AS 7500 INTERNATIONAL UNITS
     Route: 058
     Dates: start: 20210519
  4. GELONIDA [CODEINE PHOSPHATE;PARACETAMOL] [Concomitant]
     Indication: RADIATION ASSOCIATED PAIN
     Dosage: 500/50 MG
     Route: 048
     Dates: start: 202104
  5. METOCLOPRAMIDE. [Concomitant]
     Active Substance: METOCLOPRAMIDE
     Indication: NAUSEA
     Route: 042
     Dates: start: 20210623
  6. RAMIPRIL. [Concomitant]
     Active Substance: RAMIPRIL
     Indication: HYPERTENSION
     Route: 048
     Dates: start: 2020
  7. METOCLOPRAMIDE. [Concomitant]
     Active Substance: METOCLOPRAMIDE
     Indication: VOMITING
  8. ONDANSETRON [Concomitant]
     Active Substance: ONDANSETRON
     Indication: NAUSEA
     Route: 042
     Dates: start: 20210623
  9. ONDANSETRON [Concomitant]
     Active Substance: ONDANSETRON
     Indication: VOMITING
  10. DEXAMETHASONE. [Concomitant]
     Active Substance: DEXAMETHASONE
     Indication: NAUSEA
     Route: 042
     Dates: start: 20210623, end: 20210623
  11. SIMVASTATIN. [Concomitant]
     Active Substance: SIMVASTATIN
     Indication: HYPERLIPIDAEMIA
     Route: 048
     Dates: start: 1999
  12. DULAGLUTIDE. [Concomitant]
     Active Substance: DULAGLUTIDE
     Indication: TYPE 2 DIABETES MELLITUS
     Route: 058
     Dates: start: 2015
  13. BISOPROLOL [Concomitant]
     Active Substance: BISOPROLOL
     Indication: HYPERTENSION
     Route: 048
     Dates: start: 2020
  14. ATORVASTATIN [Concomitant]
     Active Substance: ATORVASTATIN
     Indication: HYPERLIPIDAEMIA
     Route: 048
     Dates: start: 20210622
  15. OXYCODONE [Concomitant]
     Active Substance: OXYCODONE
     Indication: RADIATION ASSOCIATED PAIN
     Route: 048
     Dates: start: 20210520
  16. METFORMIN [Concomitant]
     Active Substance: METFORMIN HYDROCHLORIDE
     Indication: TYPE 2 DIABETES MELLITUS
     Route: 048
     Dates: start: 1999
  17. DEXAMETHASONE. [Concomitant]
     Active Substance: DEXAMETHASONE
     Indication: VOMITING

REACTIONS (1)
  - Acute kidney injury [Recovered/Resolved with Sequelae]

NARRATIVE: CASE EVENT DATE: 20210630
